FAERS Safety Report 18492982 (Version 1)
Quarter: 2020Q4

REPORT INFORMATION
  Report Type: Spontaneous
  Country: US (occurrence: US)
  Receive Date: 20201112
  Receipt Date: 20201112
  Transmission Date: 20210114
  Serious: Yes (Hospitalization, Other)
  Sender: FDA-Public Use
  Company Number: US-JNJFOC-20201111360

PATIENT
  Age: 59 Year
  Sex: Male

DRUGS (1)
  1. INVOKANA [Suspect]
     Active Substance: CANAGLIFLOZIN
     Indication: TYPE 2 DIABETES MELLITUS
     Route: 048
     Dates: start: 2016, end: 2017

REACTIONS (5)
  - Staphylococcal infection [Unknown]
  - Sepsis [Unknown]
  - Osteomyelitis [Unknown]
  - Diabetic foot [Unknown]
  - Foot amputation [Unknown]

NARRATIVE: CASE EVENT DATE: 201608
